FAERS Safety Report 13280506 (Version 1)
Quarter: 2017Q1

REPORT INFORMATION
  Report Type: Spontaneous
  Country: US (occurrence: US)
  Receive Date: 20170301
  Receipt Date: 20170301
  Transmission Date: 20170428
  Serious: Yes (Hospitalization)
  Sender: FDA-Public Use
  Company Number: US-ZYDUS-013969

PATIENT
  Age: 65 Year
  Sex: Male

DRUGS (2)
  1. RIVAROXABAN [Suspect]
     Active Substance: RIVAROXABAN
     Indication: ANTICOAGULANT THERAPY
     Route: 065
  2. LOSARTAN. [Suspect]
     Active Substance: LOSARTAN
     Indication: HYPERTENSION
     Route: 065

REACTIONS (7)
  - Abdominal distension [Recovering/Resolving]
  - Cough [Recovering/Resolving]
  - Abdominal pain [Recovering/Resolving]
  - Abdominal wall haematoma [Recovering/Resolving]
  - Haemoglobin decreased [Recovered/Resolved]
  - Abdominal tenderness [Recovering/Resolving]
  - Contusion [Recovering/Resolving]
